FAERS Safety Report 4961382-5 (Version None)
Quarter: 2006Q2

REPORT INFORMATION
  Report Type: 
  Country: None (occurrence: None)
  Receive Date: 20060403
  Receipt Date: 20051031
  Transmission Date: 20061013
  Serious: Yes (Other)
  Sender: FDA-Public Use
  Company Number: US-MERCK-0511USA00105

PATIENT
  Age: 68 Year
  Sex: Male
  Weight: 82 kg

DRUGS (1)
  1. VIOXX [Suspect]
     Indication: BURSITIS
     Route: 048
     Dates: start: 20001220, end: 20040707

REACTIONS (4)
  - BACK PAIN [None]
  - CARDIAC DISORDER [None]
  - MYOCARDIAL INFARCTION [None]
  - VOMITING [None]
